FAERS Safety Report 4795247-9 (Version None)
Quarter: 2005Q4

REPORT INFORMATION
  Report Type: 
  Country: None (occurrence: None)
  Receive Date: 20051012
  Receipt Date: 20051004
  Transmission Date: 20060501
  Serious: Yes (Death, Hospitalization)
  Sender: FDA-Public Use
  Company Number: US-JNJFOC-20050902532

PATIENT
  Age: 24 Year
  Sex: Female

DRUGS (1)
  1. ACETAMINOPHEN/DIPHENHYDRAMINE [Suspect]
     Indication: SUICIDE ATTEMPT
     Dosage: 60 TABLETS
     Route: 048

REACTIONS (4)
  - COMPLETED SUICIDE [None]
  - DELIRIUM [None]
  - HEPATIC FAILURE [None]
  - INTENTIONAL DRUG MISUSE [None]
